FAERS Safety Report 8609121 (Version 2)
Quarter: 2013Q2

REPORT INFORMATION
  Report Type: Spontaneous
  Country: None (occurrence: US)
  Receive Date: 20120611
  Receipt Date: 20130610
  Transmission Date: 20140414
  Serious: No
  Sender: FDA-Public Use
  Company Number: US-ABBOTT-12P-163-0937078-00

PATIENT
  Age: 45 Year
  Sex: Male

DRUGS (3)
  1. POTASSIUM CHLORIDE EXTENDED-RELEASE [Suspect]
     Indication: MINERAL SUPPLEMENTATION
     Dates: start: 20110603
  2. HYDROCHLOROTHIAZIDE [Concomitant]
     Indication: PRODUCT USED FOR UNKNOWN INDICATION
  3. NORVASC [Concomitant]
     Indication: HYPERTENSION

REACTIONS (1)
  - Medication residue present [Recovered/Resolved]
